FAERS Safety Report 12902726 (Version 1)
Quarter: 2016Q4

REPORT INFORMATION
  Report Type: Spontaneous
  Country: GB (occurrence: GB)
  Receive Date: 20161102
  Receipt Date: 20161102
  Transmission Date: 20170207
  Serious: Yes (Hospitalization, Other)
  Sender: FDA-Public Use
  Company Number: GB-BAYER-2016-208538

PATIENT
  Age: 83 Year
  Sex: Male
  Weight: 100.2 kg

DRUGS (20)
  1. ENALAPRIL MALEATE. [Concomitant]
     Active Substance: ENALAPRIL MALEATE
     Dosage: 20 MG, BID
     Route: 048
  2. ALFACALCIDOL [Concomitant]
     Active Substance: ALFACALCIDOL
     Dosage: 500 NG, QD
     Route: 048
  3. XYLOCAIN [LIDOCAINE HYDROCHLORIDE] [Concomitant]
     Indication: LOCAL ANAESTHESIA
  4. LIGNOSPAN [LIDOCAINE HYDROCHLORIDE] [Concomitant]
     Indication: LOCAL ANAESTHESIA
  5. ACETAMINOPHEN. [Concomitant]
     Active Substance: ACETAMINOPHEN
     Route: 048
  6. URSODIOL. [Concomitant]
     Active Substance: URSODIOL
     Dosage: 250 MG, QD
     Route: 048
  7. FUROSEMIDE. [Suspect]
     Active Substance: FUROSEMIDE
     Dosage: 40 MG, QD
     Route: 048
     Dates: start: 20160724
  8. DICLOFENAC [Concomitant]
     Active Substance: DICLOFENAC
     Dosage: 1 DF, UNK
     Route: 061
  9. INSULATARD HM [Concomitant]
     Active Substance: INSULIN HUMAN
     Route: 058
  10. LERCANIDIPINE [Concomitant]
     Active Substance: LERCANIDIPINE
     Dosage: 10 MG, QD
     Route: 048
  11. DOXAZOSIN [Concomitant]
     Active Substance: DOXAZOSIN\DOXAZOSIN MESYLATE
     Dosage: 3 MG, QD
     Route: 048
  12. NICORANDIL [Concomitant]
     Active Substance: NICORANDIL
     Dosage: 10 MG, QD
     Route: 048
  13. PROPARACAINE [Concomitant]
     Active Substance: PROPARACAINE
     Indication: LOCAL ANAESTHESIA
     Dosage: .5 %, UNK
     Route: 047
  14. ASPRO CLEAR [Suspect]
     Active Substance: ASPIRIN
     Route: 048
     Dates: end: 20160922
  15. PREGABALIN. [Concomitant]
     Active Substance: PREGABALIN
     Dosage: 75 MG, QD
     Route: 048
  16. SIMVASTATIN. [Suspect]
     Active Substance: SIMVASTATIN
     Dosage: 20 MG, QD
     Route: 048
  17. CONOTRANE [BENZALKONIUM CHLORIDE,DIMETICONE] [Concomitant]
     Route: 061
  18. ALLOPURINOL. [Concomitant]
     Active Substance: ALLOPURINOL
     Dosage: 50 MG, QD
     Route: 048
  19. SODIUM BICARBONATE. [Concomitant]
     Active Substance: SODIUM BICARBONATE
     Dosage: 500 MG, QD
     Route: 048
  20. AMOXICILLIN. [Suspect]
     Active Substance: AMOXICILLIN
     Indication: LOWER RESPIRATORY TRACT INFECTION
     Route: 048
     Dates: start: 20160920, end: 20160922

REACTIONS (4)
  - Procedural haemorrhage [Recovered/Resolved]
  - Immune thrombocytopenic purpura [Recovering/Resolving]
  - Haemorrhagic anaemia [Unknown]
  - Contusion [Unknown]

NARRATIVE: CASE EVENT DATE: 20160922
